FAERS Safety Report 5637234-4 (Version None)
Quarter: 2008Q1

REPORT INFORMATION
  Report Type: 
  Country: None (occurrence: None)
  Receive Date: 20080219
  Receipt Date: 20080211
  Transmission Date: 20080703
  Serious: Yes (Other)
  Sender: FDA-Public Use
  Company Number: 2008003632

PATIENT
  Age: 40 Year
  Sex: Male

DRUGS (2)
  1. ZYRTEC [Suspect]
     Indication: HYPERSENSITIVITY
     Dosage: 1 TABLET ONCE DAILY, ORAL
     Route: 048
     Dates: start: 20080129, end: 20080210
  2. INDOCIN [Concomitant]

REACTIONS (2)
  - ASTHENIA [None]
  - DISORIENTATION [None]
